FAERS Safety Report 20917398 (Version 1)
Quarter: 2022Q2

REPORT INFORMATION
  Report Type: Spontaneous
  Country: US (occurrence: US)
  Receive Date: 20220606
  Receipt Date: 20220606
  Transmission Date: 20220721
  Serious: No
  Sender: FDA-Public Use
  Company Number: US-AMGEN-USASP2022086252

PATIENT

DRUGS (2)
  1. PROLIA [Suspect]
     Active Substance: DENOSUMAB
     Indication: Bone density abnormal
     Dosage: UNK
     Route: 065
     Dates: start: 202110
  2. PROLIA [Suspect]
     Active Substance: DENOSUMAB
     Indication: Off label use

REACTIONS (2)
  - Joint noise [Unknown]
  - Off label use [Unknown]

NARRATIVE: CASE EVENT DATE: 20211001
